FAERS Safety Report 11388264 (Version 9)
Quarter: 2018Q3

REPORT INFORMATION
  Report Type: Spontaneous
  Country: US (occurrence: US)
  Receive Date: 20150817
  Receipt Date: 20180926
  Transmission Date: 20181010
  Serious: Yes (Hospitalization, Other)
  Sender: FDA-Public Use
  Company Number: US-009507513-1508USA006047

PATIENT
  Sex: Female
  Weight: 55.78 kg

DRUGS (4)
  1. ZYRTEC [Concomitant]
     Active Substance: CETIRIZINE HYDROCHLORIDE
     Indication: HYPERSENSITIVITY
     Dosage: 10 MG, QD
     Route: 048
     Dates: start: 2012
  2. NUVARING [Suspect]
     Active Substance: ETHINYL ESTRADIOL\ETONOGESTREL
     Indication: CONTRACEPTION
     Dosage: 0.120 MG?0.015 MG VAGINAL RING, 1 RING IN VAGINA EVERY 3 WKS OFF FOR ONE WK
     Route: 067
     Dates: start: 201303, end: 20130816
  3. ZOLOFT [Concomitant]
     Active Substance: SERTRALINE HYDROCHLORIDE
     Indication: ANXIETY
     Dosage: 200 MG, QD
     Route: 048
     Dates: start: 1992
  4. LORAZEPAM. [Concomitant]
     Active Substance: LORAZEPAM
     Indication: ANXIETY
     Dosage: .25 MG, QD
     Route: 048
     Dates: start: 2006

REACTIONS (16)
  - Pulmonary mass [Unknown]
  - Depression [Unknown]
  - Nausea [Unknown]
  - Upper respiratory tract infection [Unknown]
  - Acne varioliformis [Unknown]
  - Pulmonary embolism [Recovered/Resolved]
  - Gallbladder polyp [Unknown]
  - Chest pain [Unknown]
  - Vomiting [Unknown]
  - Generalised anxiety disorder [Unknown]
  - Kidney infection [Unknown]
  - Restless legs syndrome [Unknown]
  - Panic disorder [Unknown]
  - Nasopharyngitis [Unknown]
  - Maternal exposure before pregnancy [Unknown]
  - Smear cervix abnormal [Unknown]

NARRATIVE: CASE EVENT DATE: 201303
